FAERS Safety Report 6069170-6 (Version None)
Quarter: 2009Q1

REPORT INFORMATION
  Report Type: 
  Country: None (occurrence: None)
  Receive Date: 20090206
  Receipt Date: 20090204
  Transmission Date: 20090719
  Serious: Yes (Other)
  Sender: FDA-Public Use
  Company Number: TR-ABBOTT-09P-161-0501537-00

PATIENT
  Age: 17 Year
  Sex: Male
  Weight: 113 kg

DRUGS (2)
  1. REDUCTIL 15MG [Suspect]
     Indication: OBESITY
     Route: 048
  2. GLUCOFEN [Suspect]
     Indication: DRUG USE FOR UNKNOWN INDICATION
     Dates: start: 20081101, end: 20090101

REACTIONS (4)
  - BLOOD CREATINE PHOSPHOKINASE INCREASED [None]
  - FATIGUE [None]
  - MYALGIA [None]
  - NAUSEA [None]
